FAERS Safety Report 6088635-4 (Version None)
Quarter: 2009Q1

REPORT INFORMATION
  Report Type: 
  Country: None (occurrence: None)
  Receive Date: 20090219
  Receipt Date: 20090206
  Transmission Date: 20090719
  Serious: Yes (Life-Threatening, Hospitalization)
  Sender: FDA-Public Use
  Company Number: GXKR2009DE01517

PATIENT
  Age: 83 Year
  Sex: Female

DRUGS (6)
  1. ACETYLSALICYLIC ACID SRT [Suspect]
     Indication: HYPERTENSION
     Dosage: 100 MG, QD
     Dates: end: 20080327
  2. DICLOFENAC POTASSIUM [Suspect]
     Indication: PAIN
  3. ENALAPRIL MALEATE [Concomitant]
  4. FURORESE (FUROSEMIDE) [Concomitant]
  5. L-THYROXINE (LEVOTHYROXINE) [Concomitant]
  6. METOPROLOL TARTRATE [Concomitant]

REACTIONS (3)
  - COLITIS [None]
  - GASTRIC ULCER [None]
  - GASTROINTESTINAL HAEMORRHAGE [None]
